FAERS Safety Report 18094496 (Version 1)
Quarter: 2020Q3

REPORT INFORMATION
  Report Type: Spontaneous
  Country: US (occurrence: US)
  Receive Date: 20200730
  Receipt Date: 20200730
  Transmission Date: 20201103
  Serious: No
  Sender: FDA-Public Use
  Company Number: US-BAUSCH-BL-2020-021394

PATIENT
  Sex: Female

DRUGS (2)
  1. LOTEMAX SM [Suspect]
     Active Substance: LOTEPREDNOL ETABONATE
     Indication: BLEPHARITIS
     Route: 047
     Dates: start: 202003, end: 2020
  2. LOTEMAX SM [Suspect]
     Active Substance: LOTEPREDNOL ETABONATE
     Indication: PRODUCT USE IN UNAPPROVED INDICATION

REACTIONS (3)
  - Nausea [Unknown]
  - Product prescribing error [Unknown]
  - Product use in unapproved indication [Unknown]

NARRATIVE: CASE EVENT DATE: 2020
